FAERS Safety Report 5423912-9 (Version None)
Quarter: 2007Q3

REPORT INFORMATION
  Report Type: 
  Country: None (occurrence: None)
  Receive Date: 20070823
  Receipt Date: 20070815
  Transmission Date: 20080115
  Serious: Yes (Hospitalization, Other)
  Sender: FDA-Public Use
  Company Number: DE-GENENTECH-245359

PATIENT
  Sex: Male
  Weight: 90 kg

DRUGS (2)
  1. RITUXAN [Suspect]
     Indication: RHEUMATOID ARTHRITIS
     Dosage: 1000 MG, UNK
     Route: 042
     Dates: start: 20070323
  2. IMMUNOSUPPRESSANTS [Concomitant]

REACTIONS (3)
  - BLOOD BRAIN BARRIER DEFECT [None]
  - GAIT DISTURBANCE [None]
  - POLYNEUROPATHY [None]
